FAERS Safety Report 21704675 (Version 2)
Quarter: 2022Q4

REPORT INFORMATION
  Report Type: Spontaneous
  Country: IR (occurrence: IR)
  Receive Date: 20221209
  Receipt Date: 20221227
  Transmission Date: 20230113
  Serious: Yes (Death, Life-Threatening, Hospitalization, Other)
  Sender: FDA-Public Use
  Company Number: None

PATIENT
  Age: 40 Year
  Sex: Female
  Weight: 80 kg

DRUGS (6)
  1. PREDNISOLONE [Suspect]
     Active Substance: PREDNISOLONE
     Indication: COVID-19
     Dosage: 125 MILLIGRAM/DAY
     Route: 065
     Dates: start: 202109
  2. DEXAMETHASONE [Suspect]
     Active Substance: DEXAMETHASONE
     Indication: COVID-19
     Dosage: 8 MILLIGRAM, BID
     Route: 042
     Dates: start: 202109
  3. TOCILIZUMAB [Suspect]
     Active Substance: TOCILIZUMAB
     Indication: COVID-19
     Dosage: 8 MILLIGRAM/KILOGRAM, TOTAL
     Route: 042
     Dates: start: 202109
  4. HEPARIN [Concomitant]
     Active Substance: HEPARIN SODIUM
     Indication: Anticoagulant therapy
     Dosage: UNK (QZD)
     Route: 065
     Dates: start: 202109
  5. OXYGEN [Concomitant]
     Active Substance: OXYGEN
     Indication: Oxygen therapy
     Dosage: UNK
     Route: 065
     Dates: start: 202109
  6. REMDESIVIR [Concomitant]
     Active Substance: REMDESIVIR
     Indication: COVID-19
     Dosage: 100 MILLIGRAM
     Route: 065

REACTIONS (5)
  - Respiratory failure [Fatal]
  - Rhinocerebral mucormycosis [Fatal]
  - Haemodynamic instability [Fatal]
  - Drug ineffective [Fatal]
  - Off label use [Unknown]

NARRATIVE: CASE EVENT DATE: 20210901
